FAERS Safety Report 19289209 (Version 6)
Quarter: 2022Q1

REPORT INFORMATION
  Report Type: Spontaneous
  Country: US (occurrence: US)
  Receive Date: 20210521
  Receipt Date: 20220324
  Transmission Date: 20220423
  Serious: Yes (Other)
  Sender: FDA-Public Use
  Company Number: NVSC2021US114812

PATIENT
  Sex: Female

DRUGS (2)
  1. COSENTYX [Suspect]
     Active Substance: SECUKINUMAB
     Indication: Psoriasis
     Dosage: 300 MG, QMO
     Route: 058
  2. COSENTYX [Suspect]
     Active Substance: SECUKINUMAB
     Dosage: UNK UNK, QMO
     Route: 058

REACTIONS (16)
  - Haematochezia [Unknown]
  - Haemorrhage [Unknown]
  - Fatigue [Unknown]
  - Thirst [Unknown]
  - Sinus congestion [Unknown]
  - Eye pruritus [Unknown]
  - Pyrexia [Unknown]
  - Cough [Unknown]
  - Abdominal pain upper [Unknown]
  - Dysuria [Unknown]
  - Weight decreased [Unknown]
  - Rash [Unknown]
  - Dyspnoea [Unknown]
  - Colitis [Unknown]
  - Sinusitis [Unknown]
  - Diarrhoea [Unknown]
